FAERS Safety Report 20761529 (Version 1)
Quarter: 2022Q2

REPORT INFORMATION
  Report Type: Report from Study
  Country: US (occurrence: US)
  Receive Date: 20220428
  Receipt Date: 20220428
  Transmission Date: 20220721
  Serious: Yes (Hospitalization)
  Sender: FDA-Public Use
  Company Number: US-Accord-261877

PATIENT
  Sex: Male
  Weight: 88.40 kg

DRUGS (6)
  1. CLOZAPINE [Suspect]
     Active Substance: CLOZAPINE
     Indication: Schizophrenia
     Dosage: 3 DAILY
     Route: 048
  2. ZOLOFT [Concomitant]
     Active Substance: SERTRALINE HYDROCHLORIDE
     Dosage: DAILY
     Route: 048
  3. KEPPRA [Concomitant]
     Active Substance: LEVETIRACETAM
     Dosage: 750/ 2 TIMES DAILY
  4. LISINOPRIL [Concomitant]
     Active Substance: LISINOPRIL
     Dosage: DAILY
  5. COREG [Concomitant]
     Active Substance: CARVEDILOL
     Dosage: 2 DAILY
  6. CLONIDINE [Concomitant]
     Active Substance: CLONIDINE
     Dosage: 3 TIMES A DAY

REACTIONS (3)
  - Encephalopathy [Not Recovered/Not Resolved]
  - Hypertension [Not Recovered/Not Resolved]
  - Atrial fibrillation [Not Recovered/Not Resolved]
